FAERS Safety Report 23978502 (Version 1)
Quarter: 2024Q2

REPORT INFORMATION
  Report Type: Spontaneous
  Country: US (occurrence: US)
  Receive Date: 20240614
  Receipt Date: 20240614
  Transmission Date: 20240716
  Serious: Yes (Hospitalization)
  Sender: FDA-Public Use
  Company Number: US-FMCRTG-FMC-2405-000586

PATIENT
  Age: 76 Year
  Sex: Female
  Weight: 45.0 kg

DRUGS (4)
  1. DELFLEX WITH DEXTROSE 1.5% LOW MAGNESIUM LOW CALCIUM [Suspect]
     Active Substance: CALCIUM CHLORIDE\DEXTROSE\MAGNESIUM CHLORIDE\SODIUM CHLORIDE\SODIUM LACTATE
     Indication: End stage renal disease
     Dosage: EXCHANGES 4, FILL VOLUME 2000 ML, DWELL TIME 1.5 HOURS, LAST FILL 1500 ML (ICODEXTRIN), DAYTIME DWEL
     Route: 033
  2. DELFLEX WITH DEXTROSE 2.5% LOW MAGNESIUM LOW CALCIUM [Suspect]
     Active Substance: CALCIUM CHLORIDE\DEXTROSE\MAGNESIUM CHLORIDE\SODIUM CHLORIDE\SODIUM LACTATE
     Indication: End stage renal disease
     Dosage: EXCHANGES 4, FILL VOLUME 2000 ML, DWELL TIME 1.5 HOURS, LAST FILL 1500 ML (ICODEXTRIN), DAYTIME DWEL
     Route: 033
  3. DELFLEX WITH DEXTROSE 4.25% LOW MAGNESIUM LOW CALCIUM [Suspect]
     Active Substance: CALCIUM CHLORIDE\DEXTROSE\MAGNESIUM CHLORIDE\SODIUM CHLORIDE\SODIUM LACTATE
     Indication: End stage renal disease
     Dosage: EXCHANGES 4, FILL VOLUME 2000 ML, DWELL TIME 1.5 HOURS, LAST FILL 1500 ML (ICODEXTRIN), DAYTIME DWEL
     Route: 033
  4. ICODEXTRIN [Suspect]
     Active Substance: ICODEXTRIN
     Indication: End stage renal disease
     Dosage: EXCHANGES 4, FILL VOLUME 2000 ML, DWELL TIME 1.5 HOURS, LAST FILL 1500 ML (ICODEXTRIN), DAYTIME DWEL

REACTIONS (1)
  - Peritonitis [Recovering/Resolving]

NARRATIVE: CASE EVENT DATE: 20240513
